FAERS Safety Report 9200772 (Version 1)
Quarter: 2013Q1

REPORT INFORMATION
  Report Type: Spontaneous
  Country: US (occurrence: None)
  Receive Date: 20130328
  Receipt Date: 20130328
  Transmission Date: 20140127
  Serious: No
  Sender: FDA-Public Use
  Company Number: None

PATIENT
  Age: 54 Year
  Sex: Male
  Weight: 95.26 kg

DRUGS (1)
  1. AMLODIPINE [Suspect]
     Indication: HYPERTENSION
     Route: 048
     Dates: start: 20130101, end: 20130327

REACTIONS (6)
  - Epistaxis [None]
  - Fatigue [None]
  - Nausea [None]
  - Dizziness [None]
  - Contusion [None]
  - Blood cholesterol increased [None]
